FAERS Safety Report 4523414-8 (Version None)
Quarter: 2004Q4

REPORT INFORMATION
  Report Type: 
  Country: None (occurrence: None)
  Receive Date: 20041117
  Receipt Date: 20040113
  Transmission Date: 20050328
  Serious: Yes (Hospitalization)
  Sender: FDA-Public Use
  Company Number: US-JNJFOC-20031103783

PATIENT
  Age: 82 Year
  Sex: Female
  Weight: 52.1637 kg

DRUGS (8)
  1. LEVAQUIN [Suspect]
     Indication: CELLULITIS
     Dosage: 500 MG, INTRAVENOUS
     Route: 042
     Dates: start: 20031101
  2. ROCEPHIN [Suspect]
     Indication: CELLULITIS
     Dosage: 1 G, INTRAVENOUS
     Route: 042
     Dates: start: 20031101
  3. PREMARIN [Concomitant]
  4. LOTENSIN [Concomitant]
  5. TOPROLOL (METOPROLOL SUCCINATE) [Concomitant]
  6. LIPITOR [Concomitant]
  7. VOLTAREN [Concomitant]
  8. PREVACID [Concomitant]

REACTIONS (1)
  - CLOSTRIDIAL INFECTION [None]
